FAERS Safety Report 12741364 (Version 3)
Quarter: 2016Q4

REPORT INFORMATION
  Report Type: Spontaneous
  Country: US (occurrence: US)
  Receive Date: 20160914
  Receipt Date: 20161220
  Transmission Date: 20170207
  Serious: Yes (Hospitalization)
  Sender: FDA-Public Use
  Company Number: US-PFIZER INC-2016429673

PATIENT
  Age: 81 Year
  Sex: Male

DRUGS (2)
  1. LYRICA [Suspect]
     Active Substance: PREGABALIN
     Indication: PAIN IN EXTREMITY
     Dosage: UNK, 2X/DAY (TWICE A DAY AM/PM)
     Dates: start: 2015
  2. MORTON EPSOM [Concomitant]
     Dosage: UNK

REACTIONS (1)
  - Neuropathy peripheral [Recovering/Resolving]
